FAERS Safety Report 8471642 (Version 12)
Quarter: 2013Q4

REPORT INFORMATION
  Report Type: Spontaneous
  Country: US (occurrence: US)
  Receive Date: 20120322
  Receipt Date: 20131120
  Transmission Date: 20140711
  Serious: Yes (Life-Threatening, Hospitalization)
  Sender: FDA-Public Use
  Company Number: US-ROXANE LABORATORIES, INC.-2012-RO-00887RO

PATIENT
  Age: 56 Year
  Sex: Female
  Weight: 81 kg

DRUGS (42)
  1. PREDNISONE [Suspect]
     Indication: UVEITIS
     Dosage: 60 MG
     Route: 048
     Dates: start: 20110914, end: 20110927
  2. PREDNISONE [Suspect]
     Dosage: 50 MG
     Route: 048
     Dates: start: 20110928, end: 20111004
  3. PREDNISONE [Suspect]
     Dosage: 40 MG
     Route: 048
     Dates: start: 20111005, end: 20111011
  4. PREDNISONE [Suspect]
     Dosage: 30 MG
     Route: 048
     Dates: start: 20111012, end: 20111018
  5. PREDNISONE [Suspect]
     Dosage: 20 MG
     Route: 048
     Dates: start: 20111019, end: 20111025
  6. PREDNISONE [Suspect]
     Dosage: 15 NR
     Route: 048
     Dates: start: 20111026, end: 20111101
  7. PREDNISONE [Suspect]
     Dosage: 12.5 MG
     Route: 048
     Dates: start: 20111102, end: 20111108
  8. PREDNISONE [Suspect]
     Dosage: 10 MG
     Route: 048
     Dates: start: 20111109, end: 20111116
  9. PREDNISONE [Suspect]
     Dosage: 7.5 MG
     Route: 048
     Dates: start: 20111117, end: 20111123
  10. PREDNISONE [Suspect]
     Dosage: 5 MG
     Route: 048
     Dates: start: 20111124, end: 20111130
  11. PREDNISONE [Suspect]
     Dosage: 4 MG
     Route: 048
     Dates: start: 20111201, end: 20111207
  12. PREDNISONE [Suspect]
     Dosage: 3 MG
     Route: 048
     Dates: start: 20111208, end: 20111214
  13. PREDNISONE [Suspect]
     Dosage: 2 MG
     Route: 048
     Dates: start: 20111215, end: 20111221
  14. PREDNISONE [Suspect]
     Dosage: 1 MG
     Route: 048
     Dates: start: 20111222, end: 20111228
  15. HUMIRA [Suspect]
     Indication: UVEITIS
     Route: 058
     Dates: start: 20110914, end: 20120208
  16. HUMIRA [Suspect]
     Route: 058
     Dates: start: 20120229
  17. KETOROLAC TROMETHAMINE [Concomitant]
     Indication: UVEITIS
     Route: 061
     Dates: start: 20081015
  18. MYCOPHENOLATE MOFETIL [Concomitant]
     Indication: UVEITIS
     Dosage: 2000 MG
     Route: 048
     Dates: start: 20101024, end: 201106
  19. MYCOPHENOLATE MOFETIL [Concomitant]
     Dates: start: 2008
  20. CELLCEPT [Concomitant]
     Dosage: 500 MG
     Dates: start: 2008
  21. GABAPENTIN [Concomitant]
     Indication: ARTHRALGIA
     Dosage: 1800 MG
     Dates: start: 2010, end: 20120509
  22. LISINOPRIL [Concomitant]
     Indication: HYPERTENSION
     Dosage: 30 MG
     Dates: start: 2003
  23. LORATADINE [Concomitant]
     Indication: HYPERSENSITIVITY
     Dosage: 10 MG
     Dates: start: 2003
  24. PROMETHAZINE [Concomitant]
     Indication: NAUSEA
     Dates: start: 2009
  25. ROSUVASTATIN CALCIUM [Concomitant]
     Indication: HYPERLIPIDAEMIA
     Dosage: 40 MG
     Dates: start: 2010
  26. BUPROPION HYDROCHLORIDE [Concomitant]
     Indication: DEPRESSION
     Dosage: 200 MG
     Dates: start: 2003
  27. CALCIUM WITH D [Concomitant]
     Indication: MINERAL SUPPLEMENTATION
     Dates: start: 2005
  28. CEFIXIME [Concomitant]
     Indication: BACK PAIN
     Dates: start: 2004
  29. DICLOFENAC SODIUM [Concomitant]
     Indication: ARTHRALGIA
     Dosage: 2 MG
     Dates: start: 2010
  30. ESTRADIOL [Concomitant]
     Indication: OESTROGEN REPLACEMENT THERAPY
     Dates: start: 2009
  31. FOLIC ACID [Concomitant]
     Indication: VITAMIN SUPPLEMENTATION
     Dosage: 1 MG
     Dates: start: 2004
  32. FUROSEMIDE [Concomitant]
     Indication: DIURETIC THERAPY
     Dosage: 20 MG
     Dates: start: 2005
  33. FUROSEMIDE [Concomitant]
     Indication: HYPERTENSION
  34. SERTRALINE HYDROCHLORIDE [Concomitant]
     Indication: DEPRESSION
     Dosage: 25 MG
     Dates: start: 2008
  35. TRAMADOL [Concomitant]
     Indication: ARTHRALGIA
     Dates: start: 2006
  36. VICODIN [Concomitant]
     Indication: HEADACHE
     Dates: start: 20111020
  37. LORAZEPAM [Concomitant]
     Indication: ANXIETY
     Dates: start: 20111013
  38. CYCLOBENZAPRINE HYDROCHLORIDE [Concomitant]
     Indication: BACK PAIN
     Dates: start: 2004
  39. METOPROLOL [Concomitant]
     Indication: BLOOD PRESSURE
     Dosage: 200 MG
     Dates: start: 20111108
  40. PANTOPRAZOLE SODIUM SESQUIHYDRATE [Concomitant]
     Indication: ABDOMINAL DISCOMFORT
     Dosage: 80 MG
     Dates: start: 20111208
  41. AMLODIPINE MALEATE [Concomitant]
     Indication: HYPERTENSION
     Dosage: 10 MG
     Dates: start: 20111209, end: 20120117
  42. AMLODIPINE MALEATE [Concomitant]
     Dosage: 5 MG
     Dates: start: 20120118, end: 20120202

REACTIONS (2)
  - Gastroenteritis viral [Recovered/Resolved]
  - Fluid overload [Recovered/Resolved]
